FAERS Safety Report 17671512 (Version 1)
Quarter: 2020Q2

REPORT INFORMATION
  Report Type: Other
  Country: US (occurrence: US)
  Receive Date: 20200415
  Receipt Date: 20200415
  Transmission Date: 20200713
  Serious: No
  Sender: FDA-Public Use
  Company Number: US-ALKERMES INC.-ALK-2019-006091

PATIENT
  Age: 31 Year
  Sex: Male
  Weight: 148.5 kg

DRUGS (1)
  1. VIVITROL [Suspect]
     Active Substance: NALTREXONE
     Indication: DRUG DEPENDENCE
     Dosage: 380 MG, QMO
     Route: 008
     Dates: start: 20170708, end: 20170808

REACTIONS (4)
  - Swelling [Not Recovered/Not Resolved]
  - Incorrect route of product administration [Recovered/Resolved]
  - Pain [Not Recovered/Not Resolved]
  - Skin texture abnormal [Not Recovered/Not Resolved]

NARRATIVE: CASE EVENT DATE: 20170708
